FAERS Safety Report 24399640 (Version 2)
Quarter: 2025Q3

REPORT INFORMATION
  Report Type: Report from Study
  Country: US (occurrence: US)
  Receive Date: 20241005
  Receipt Date: 20250803
  Transmission Date: 20251020
  Serious: Yes (Other)
  Sender: ALEXION PHARMACEUTICALS
  Company Number: US-AstraZeneca-CH-00711486A

PATIENT
  Sex: Female

DRUGS (1)
  1. FARXIGA [Suspect]
     Active Substance: DAPAGLIFLOZIN PROPANEDIOL

REACTIONS (9)
  - Atrial fibrillation [Unknown]
  - Spinal fracture [Unknown]
  - Ankle fracture [Unknown]
  - Head injury [Unknown]
  - Nerve injury [Unknown]
  - Product use issue [Unknown]
  - Pain [Unknown]
  - Fall [Unknown]
  - Loss of consciousness [Unknown]
